FAERS Safety Report 15067228 (Version 1)
Quarter: 2018Q2

REPORT INFORMATION
  Report Type: Spontaneous
  Country: US (occurrence: US)
  Receive Date: 20180606
  Receipt Date: 20180606
  Transmission Date: 20180711
  Serious: Yes (Disabling)
  Sender: FDA-Public Use
  Company Number: None

PATIENT
  Age: 58 Year
  Sex: Female
  Weight: 51.75 kg

DRUGS (1)
  1. SIMPLE BALANCE BORIC ACID BOTTLE OF 60 [Suspect]
     Active Substance: BORIC ACID
     Indication: VAGINAL DISCHARGE
     Route: 048
     Dates: start: 20180605, end: 20180606

REACTIONS (2)
  - Product use complaint [None]
  - Incorrect route of drug administration [None]

NARRATIVE: CASE EVENT DATE: 20180605
